FAERS Safety Report 7519089-6 (Version None)
Quarter: 2011Q2

REPORT INFORMATION
  Report Type: 
  Country: None (occurrence: None)
  Receive Date: 20110512
  Receipt Date: 20110215
  Transmission Date: 20111010
  Serious: Yes (Other)
  Sender: FDA-Public Use
  Company Number: 1000018286

PATIENT
  Age: 32 Year
  Sex: Female

DRUGS (10)
  1. FENTANYL [Concomitant]
  2. PROMETHAZINE (PROMETHAZINE) (PROMETHAZINE) [Concomitant]
  3. CLONAZEPAM [Concomitant]
  4. SAVELLA [Suspect]
     Indication: FIBROMYALGIA
     Dosage: SEE IMAGE
     Route: 048
     Dates: start: 20101125
  5. SAVELLA [Suspect]
     Indication: FIBROMYALGIA
     Dosage: SEE IMAGE
     Route: 048
     Dates: start: 20101118, end: 20101118
  6. SAVELLA [Suspect]
     Indication: FIBROMYALGIA
     Dosage: SEE IMAGE
     Route: 048
     Dates: start: 20101121, end: 20101124
  7. SAVELLA [Suspect]
     Indication: FIBROMYALGIA
     Dosage: SEE IMAGE
     Route: 048
     Dates: start: 20101119, end: 20101120
  8. SOMA [Concomitant]
  9. MORPHINE [Concomitant]
  10. CYCLOBENZAPRINE HCL [Concomitant]

REACTIONS (1)
  - SUICIDAL IDEATION [None]
